FAERS Safety Report 8084039-3 (Version None)
Quarter: 2012Q1

REPORT INFORMATION
  Report Type: 
  Country: None (occurrence: None)
  Receive Date: 20120128
  Receipt Date: 20110127
  Transmission Date: 20120608
  Serious: No
  Sender: FDA-Public Use
  Company Number: US-ABBOTT-11P-163-0701411-00

PATIENT
  Sex: Male
  Weight: 77.18 kg

DRUGS (2)
  1. HUMIRA [Suspect]
     Indication: RHEUMATOID ARTHRITIS
     Dates: start: 20070101, end: 20090901
  2. HUMIRA [Suspect]
     Dates: start: 20100605

REACTIONS (11)
  - PRURITUS [None]
  - RASH MACULAR [None]
  - NON-CARDIAC CHEST PAIN [None]
  - INSOMNIA [None]
  - FATIGUE [None]
  - HYPOACUSIS [None]
  - ARTHRALGIA [None]
  - EAR INFECTION [None]
  - RHEUMATOID ARTHRITIS [None]
  - INAPPROPRIATE SCHEDULE OF DRUG ADMINISTRATION [None]
  - SNEEZING [None]
